FAERS Safety Report 15463906 (Version 2)
Quarter: 2019Q1

REPORT INFORMATION
  Report Type: Spontaneous
  Country: JP (occurrence: JP)
  Receive Date: 20181004
  Receipt Date: 20190305
  Transmission Date: 20190417
  Serious: Yes (Death)
  Sender: FDA-Public Use
  Company Number: JP-PFIZER INC-2018398444

PATIENT
  Age: 8 Decade
  Sex: Female

DRUGS (6)
  1. CAMPTO [Suspect]
     Active Substance: IRINOTECAN
     Dosage: 180 MG, 1X/DAY (2ND CYCLE)
     Route: 041
     Dates: start: 201809, end: 201809
  2. 5-FU [FLUOROURACIL] [Concomitant]
     Active Substance: FLUOROURACIL
     Dosage: 2400 MG/BODY/D1-2 CONTINUOUS INFUSION (FOLFIRI, WITHOUT FLUOROURACIL BOLUS)
     Dates: start: 201808, end: 201808
  3. ZALTRAP [Suspect]
     Active Substance: ZIV-AFLIBERCEPT
     Dosage: 4 MG/KG, 1X/DAY (2ND CYCLE)
     Route: 041
     Dates: start: 201809, end: 201809
  4. CAMPTO [Suspect]
     Active Substance: IRINOTECAN
     Indication: COLON CANCER
     Dosage: 180 MG, 1X/DAY (180 MG/BODY)
     Route: 041
     Dates: start: 201808, end: 201808
  5. LEVOFOLINATE CALCIUM [Concomitant]
     Active Substance: LEVOLEUCOVORIN CALCIUM
     Dosage: 200 MG/BODY
     Dates: start: 201808, end: 201808
  6. ZALTRAP [Suspect]
     Active Substance: ZIV-AFLIBERCEPT
     Indication: COLON CANCER
     Dosage: 4 MG/KG, 1X/DAY
     Route: 041
     Dates: start: 201808, end: 201808

REACTIONS (3)
  - Diarrhoea [Fatal]
  - Febrile neutropenia [Fatal]
  - Stomatitis [Fatal]

NARRATIVE: CASE EVENT DATE: 201809
